FAERS Safety Report 5021484-4 (Version None)
Quarter: 2006Q2

REPORT INFORMATION
  Report Type: 
  Country: None (occurrence: None)
  Receive Date: 20060608
  Receipt Date: 20060524
  Transmission Date: 20061013
  Serious: Yes (Hospitalization, Other)
  Sender: FDA-Public Use
  Company Number: PHBS2006JP07717

PATIENT
  Age: 28 Year
  Sex: Female

DRUGS (2)
  1. METHERGINE [Suspect]
     Dosage: 0.25 MG/DAY
     Route: 048
  2. OXYTOCIN [Concomitant]
     Dosage: 5 IU/H, UNK
     Route: 041

REACTIONS (8)
  - ANGIOPATHY [None]
  - CEREBROVASCULAR SPASM [None]
  - GRAND MAL CONVULSION [None]
  - HAEMORRHAGE [None]
  - HEADACHE [None]
  - LOSS OF CONSCIOUSNESS [None]
  - NUCLEAR MAGNETIC RESONANCE IMAGING ABNORMAL [None]
  - VISUAL DISTURBANCE [None]
